FAERS Safety Report 23122935 (Version 1)
Quarter: 2023Q4

REPORT INFORMATION
  Report Type: Spontaneous
  Country: US (occurrence: US)
  Receive Date: 20231030
  Receipt Date: 20231030
  Transmission Date: 20240110
  Serious: No
  Sender: FDA-Public Use
  Company Number: US-APOTEX-2022AP016267

PATIENT
  Age: 13 Year
  Sex: Female

DRUGS (4)
  1. SIROLIMUS [Suspect]
     Active Substance: SIROLIMUS
     Indication: Serositis
     Dosage: 3 MILLIGRAM, QD
     Route: 065
  2. RITUXIMAB [Concomitant]
     Active Substance: RITUXIMAB
     Indication: Serositis
     Dosage: 375 MG/M2/DOSE, Q.WK. (FOR FOUR DOSES)
     Route: 065
  3. SILTUXIMAB [Concomitant]
     Active Substance: SILTUXIMAB
     Indication: Castleman^s disease
     Dosage: UNK
     Route: 065
  4. METHYLPREDNISOLONE [Concomitant]
     Active Substance: METHYLPREDNISOLONE
     Indication: Castleman^s disease
     Dosage: 2 MILLIGRAM/KILOGRAM/ DOSE
     Route: 065

REACTIONS (1)
  - Proteinuria [Unknown]
